FAERS Safety Report 7985719-8 (Version None)
Quarter: 2011Q4

REPORT INFORMATION
  Report Type: 
  Country: None (occurrence: None)
  Receive Date: 20111216
  Receipt Date: 20111216
  Transmission Date: 20120403
  Serious: Yes (Other)
  Sender: FDA-Public Use
  Company Number: None

PATIENT
  Age: 59 Year
  Sex: Female
  Weight: 77.11 kg

DRUGS (1)
  1. CELEXA [Suspect]
     Indication: DEPRESSION

REACTIONS (5)
  - HYPOAESTHESIA [None]
  - DIZZINESS [None]
  - OVERDOSE [None]
  - DEPRESSION [None]
  - WITHDRAWAL SYNDROME [None]
